FAERS Safety Report 9980016 (Version 1)
Quarter: 2014Q1

REPORT INFORMATION
  Report Type: Spontaneous
  Country: GB (occurrence: GB)
  Receive Date: 20140307
  Receipt Date: 20140307
  Transmission Date: 20141002
  Serious: Yes (Other)
  Sender: FDA-Public Use
  Company Number: GB-PFIZER INC-2014063630

PATIENT
  Age: 69 Year
  Sex: Male
  Weight: 96 kg

DRUGS (5)
  1. RAMIPRIL [Suspect]
     Dosage: UNK
     Dates: start: 20131029
  2. CO-CODAMOL [Concomitant]
     Dosage: UNK
     Dates: start: 20140121, end: 20140218
  3. DICLOFENAC SODIUM [Concomitant]
     Dosage: UNK
     Dates: start: 20131112, end: 20140111
  4. OMEPRAZOLE [Concomitant]
     Dosage: UNK
     Dates: start: 20131023, end: 20131218
  5. LOSARTAN [Concomitant]
     Dosage: UNK
     Dates: start: 20140218

REACTIONS (3)
  - Gingival swelling [Recovered/Resolved]
  - Tooth disorder [Recovered/Resolved]
  - Gingival pain [Recovered/Resolved]
